FAERS Safety Report 13352718 (Version 6)
Quarter: 2017Q4

REPORT INFORMATION
  Report Type: Spontaneous
  Country: US (occurrence: US)
  Receive Date: 20170320
  Receipt Date: 20171003
  Transmission Date: 20180320
  Serious: Yes (Hospitalization, Other)
  Sender: FDA-Public Use
  Company Number: US-PFIZER INC-2017109303

PATIENT
  Age: 66 Year
  Sex: Female
  Weight: 76.19 kg

DRUGS (5)
  1. IBRANCE [Suspect]
     Active Substance: PALBOCICLIB
     Dosage: 100 MG, CYCLIC (1 DAILY FOR 21 DAYS, THEN 7 DAYS OFF)
     Route: 048
     Dates: start: 20170314, end: 20170828
  2. IBRANCE [Suspect]
     Active Substance: PALBOCICLIB
     Dosage: UNK, CYCLIC, (1D-21D Q28D)
     Route: 048
  3. IBRANCE [Suspect]
     Active Substance: PALBOCICLIB
     Dosage: 100 MG, CYCLIC [D 1-21 Q 28 DAYS]
     Route: 048
     Dates: start: 20170409, end: 2017
  4. IBRANCE [Suspect]
     Active Substance: PALBOCICLIB
     Dosage: 100 MG, CYCLIC(DAY 1-21 Q 28 DAYS)
     Route: 048
     Dates: start: 20170409, end: 2017
  5. IBRANCE [Suspect]
     Active Substance: PALBOCICLIB
     Indication: BREAST CANCER METASTATIC
     Dosage: UNK
     Route: 048
     Dates: start: 201409, end: 201502

REACTIONS (6)
  - Asthenia [Unknown]
  - Somnolence [Unknown]
  - Dizziness [Unknown]
  - Postoperative wound infection [Not Recovered/Not Resolved]
  - Confusional state [Unknown]
  - Cerebrovascular accident [Unknown]

NARRATIVE: CASE EVENT DATE: 2017
